FAERS Safety Report 20354825 (Version 1)
Quarter: 2022Q1

REPORT INFORMATION
  Report Type: Spontaneous
  Country: US (occurrence: None)
  Receive Date: 20220119
  Receipt Date: 20220119
  Transmission Date: 20220423
  Serious: Yes (Hospitalization)
  Sender: FDA-Public Use
  Company Number: None

PATIENT
  Age: 24 Year
  Sex: Male

DRUGS (8)
  1. HUMIRA [Suspect]
     Active Substance: ADALIMUMAB
  2. EPINEPHRINE INJ [Concomitant]
  3. FOLIC ACID [Concomitant]
  4. HUMIRA PEN INJ [Concomitant]
  5. PATADAY SOL [Concomitant]
  6. PULMICORT INH [Concomitant]
  7. VENTOLIN HFA [Concomitant]
  8. ZYRTEC ALLGY [Concomitant]

REACTIONS (5)
  - Abdominal pain [None]
  - Condition aggravated [None]
  - Vitamin B complex deficiency [None]
  - Asthma [None]
  - Vitamin D deficiency [None]

NARRATIVE: CASE EVENT DATE: 20211229
